FAERS Safety Report 4354790-7 (Version None)
Quarter: 2004Q2

REPORT INFORMATION
  Report Type: 
  Country: None (occurrence: None)
  Receive Date: 20040507
  Receipt Date: 20040326
  Transmission Date: 20050107
  Serious: Yes (Hospitalization)
  Sender: FDA-Public Use
  Company Number: US-MERCK-0403USA02459

PATIENT
  Age: 35 Year
  Sex: Female

DRUGS (15)
  1. ACYCLOVIR [Concomitant]
     Route: 048
     Dates: start: 20040126
  2. ACYCLOVIR [Concomitant]
     Route: 048
     Dates: start: 20031101
  3. ATAZANAVIR [Concomitant]
     Route: 065
  4. AZITHROMYCIN [Concomitant]
     Indication: PROPHYLAXIS AGAINST HIV INFECTION
     Route: 065
     Dates: start: 20031101
  5. AZITHROMYCIN [Concomitant]
     Route: 048
     Dates: start: 20040126
  6. CANCIDAS [Suspect]
     Indication: OESOPHAGEAL CANDIDIASIS
     Route: 042
     Dates: start: 20030620, end: 20030626
  7. CANCIDAS [Suspect]
     Route: 042
     Dates: start: 20040201, end: 20040315
  8. CANCIDAS [Suspect]
     Route: 041
     Dates: start: 20040119, end: 20040207
  9. CANCIDAS [Suspect]
     Route: 042
     Dates: start: 20031108
  10. CANCIDAS [Suspect]
     Route: 042
     Dates: start: 20031005
  11. CANCIDAS [Suspect]
     Route: 042
     Dates: start: 20030903, end: 20030901
  12. CANCIDAS [Suspect]
     Route: 042
     Dates: start: 20030801
  13. CANCIDAS [Suspect]
     Route: 042
     Dates: start: 20030801, end: 20030903
  14. CANCIDAS [Suspect]
     Route: 042
     Dates: start: 20040301
  15. DIDANOSINE [Concomitant]
     Route: 065

REACTIONS (22)
  - ANAEMIA [None]
  - BACTERIAL INFECTION [None]
  - CHILLS [None]
  - DECREASED APPETITE [None]
  - DEHYDRATION [None]
  - DISEASE RECURRENCE [None]
  - HERPES SIMPLEX [None]
  - HYPOTENSION [None]
  - LEUKOPENIA [None]
  - MENINGITIS ASEPTIC [None]
  - MYCOBACTERIAL INFECTION [None]
  - NAUSEA [None]
  - ODYNOPHAGIA [None]
  - OESOPHAGEAL CANDIDIASIS [None]
  - PLEURITIC PAIN [None]
  - PNEUMOCYSTIS CARINII PNEUMONIA [None]
  - PNEUMONIA [None]
  - PROCTITIS HERPES [None]
  - PYREXIA [None]
  - TACHYCARDIA [None]
  - TRICHOMONIASIS [None]
  - VAGINAL HAEMORRHAGE [None]
